FAERS Safety Report 24291677 (Version 1)
Quarter: 2024Q3

REPORT INFORMATION
  Report Type: Spontaneous
  Country: US (occurrence: None)
  Receive Date: 20240906
  Receipt Date: 20240906
  Transmission Date: 20241017
  Serious: No
  Sender: DOMPE FARMACEUTICI
  Company Number: US-FARMAPROD-202308-202310-2938

PATIENT
  Sex: Female

DRUGS (21)
  1. OXERVATE [Suspect]
     Active Substance: CENEGERMIN-BKBJ
     Indication: Neurotrophic keratopathy
     Route: 047
     Dates: start: 20230810
  2. THIAMINE HYDROCHLORIDE [Concomitant]
     Active Substance: THIAMINE HYDROCHLORIDE
  3. VITAMIN K-1 [Concomitant]
  4. COENZYME Q10 [Concomitant]
     Active Substance: DIETARY SUPPLEMENT\UBIDECARENONE
     Dosage: 100MG-5
  5. IRON [Concomitant]
     Active Substance: IRON
     Dosage: 159(45)MG
  6. OMEGA 3 [Concomitant]
     Active Substance: CAPSAICIN
     Dosage: 684-1200MG, DELAYED RELEASE.
  7. ASPIRIN [Concomitant]
     Active Substance: ASPIRIN
  8. VITAMINS [Concomitant]
     Active Substance: VITAMINS
  9. MAGNESIUM [Concomitant]
     Active Substance: MAGNESIUM
  10. ULTOMIRIS [Concomitant]
     Active Substance: RAVULIZUMAB-CWVZ
     Dosage: 1100 MG/11 VIAL
  11. MYCOPHENOLIC ACID [Concomitant]
     Active Substance: MYCOPHENOLIC ACID
  12. HYDROXYCHLOROQUINE SULFATE [Concomitant]
     Active Substance: HYDROXYCHLOROQUINE SULFATE
  13. LOSARTAN POTASSIUM [Concomitant]
     Active Substance: LOSARTAN POTASSIUM
  14. LEVOTHYROXINE SODIUM [Concomitant]
     Active Substance: LEVOTHYROXINE SODIUM
  15. LEVETIRACETAM [Concomitant]
     Active Substance: LEVETIRACETAM
  16. FAMOTIDINE [Concomitant]
     Active Substance: FAMOTIDINE
  17. AMLODIPINE BESYLATE [Concomitant]
     Active Substance: AMLODIPINE BESYLATE
  18. METOPROLOL SUCCINATE [Concomitant]
     Active Substance: METOPROLOL SUCCINATE
  19. NEBIVOLOL [Concomitant]
     Active Substance: NEBIVOLOL
  20. XIIDRA [Concomitant]
     Active Substance: LIFITEGRAST
  21. LOTEMAX [Concomitant]
     Active Substance: LOTEPREDNOL ETABONATE

REACTIONS (1)
  - Eye irritation [Unknown]
